FAERS Safety Report 6742549-2 (Version None)
Quarter: 2010Q2

REPORT INFORMATION
  Report Type: 
  Country: None (occurrence: None)
  Receive Date: 20100524
  Receipt Date: 20100419
  Transmission Date: 20101027
  Serious: No
  Sender: FDA-Public Use
  Company Number: ACO_00720_2010

PATIENT
  Age: 54 Year
  Sex: Female
  Weight: 59.8748 kg

DRUGS (6)
  1. AMPYRA [Suspect]
     Indication: MULTIPLE SCLEROSIS
     Dosage: (10 MG BID ORAL) ; (10 MG QD ORAL)
     Route: 048
     Dates: start: 20100411, end: 20100413
  2. AMPYRA [Suspect]
     Indication: MULTIPLE SCLEROSIS
     Dosage: (10 MG BID ORAL) ; (10 MG QD ORAL)
     Route: 048
     Dates: start: 20100414, end: 20100416
  3. AVONEX [Concomitant]
  4. PROVIGIL [Concomitant]
  5. ZOMIG [Concomitant]
  6. PREMARIN [Concomitant]

REACTIONS (6)
  - HEART RATE INCREASED [None]
  - INAPPROPRIATE SCHEDULE OF DRUG ADMINISTRATION [None]
  - INSOMNIA [None]
  - MALAISE [None]
  - MIGRAINE [None]
  - NAUSEA [None]
